FAERS Safety Report 5812536-7 (Version None)
Quarter: 2008Q3

REPORT INFORMATION
  Report Type: 
  Country: None (occurrence: None)
  Receive Date: 20080714
  Receipt Date: 20080714
  Transmission Date: 20090109
  Serious: Yes (Life-Threatening, Hospitalization)
  Sender: FDA-Public Use
  Company Number: None

PATIENT
  Age: 60 Year
  Sex: Female

DRUGS (6)
  1. LISINOPRIL [Suspect]
     Indication: DIABETES MELLITUS
     Dosage: UNKNOWN-HOME MEDICATION PO, MONTHS
     Route: 048
  2. LISINOPRIL [Suspect]
     Indication: HYPERTENSION
     Dosage: UNKNOWN-HOME MEDICATION PO, MONTHS
     Route: 048
  3. METHYLPREDNISOLONE SODIUM SUCCINATE [Concomitant]
  4. DIPHENHYDRAMINE HCL [Concomitant]
  5. PEPCID [Concomitant]
  6. INTUBATION [Concomitant]

REACTIONS (3)
  - RESPIRATORY DISORDER [None]
  - SWELLING [None]
  - SWOLLEN TONGUE [None]
